FAERS Safety Report 25512218 (Version 1)
Quarter: 2025Q3

REPORT INFORMATION
  Report Type: Report from Study
  Country: US (occurrence: US)
  Receive Date: 20250703
  Receipt Date: 20250703
  Transmission Date: 20251021
  Serious: Yes (Other)
  Sender: CALLIDITAS THERAPEUTICS AB
  Company Number: US-Calliditas-2025CAL00747

PATIENT
  Age: 26 Year
  Sex: Male

DRUGS (3)
  1. TARPEYO [Suspect]
     Active Substance: BUDESONIDE
     Indication: IgA nephropathy
     Route: 048
     Dates: start: 20241218
  2. JARDIANCE [Concomitant]
     Active Substance: EMPAGLIFLOZIN
  3. LISINOPRIL [Concomitant]
     Active Substance: LISINOPRIL

REACTIONS (11)
  - Dizziness [Not Recovered/Not Resolved]
  - Dyspnoea exertional [Not Recovered/Not Resolved]
  - Blood cholesterol increased [Not Recovered/Not Resolved]
  - Headache [Not Recovered/Not Resolved]
  - Product dose omission issue [Unknown]
  - Chest discomfort [Unknown]
  - Cardiac flutter [Unknown]
  - Bladder discomfort [Unknown]
  - Flank pain [Not Recovered/Not Resolved]
  - Swelling [Not Recovered/Not Resolved]
  - Vision blurred [Not Recovered/Not Resolved]

NARRATIVE: CASE EVENT DATE: 20250423
